FAERS Safety Report 11774226 (Version 1)
Quarter: 2015Q4

REPORT INFORMATION
  Report Type: Spontaneous
  Country: US (occurrence: US)
  Receive Date: 20151124
  Receipt Date: 20151124
  Transmission Date: 20160304
  Serious: No
  Sender: FDA-Public Use
  Company Number: US-PERRIGO-15US000881

PATIENT
  Age: 75 Year
  Sex: Female
  Weight: 77.98 kg

DRUGS (6)
  1. SYMBICORT [Concomitant]
     Active Substance: BUDESONIDE\FORMOTEROL FUMARATE DIHYDRATE
     Indication: CHRONIC OBSTRUCTIVE PULMONARY DISEASE
     Dosage: UNK
     Route: 055
  2. DRUGS USED IN DIABETES [Concomitant]
     Active Substance: UNSPECIFIED INGREDIENT
     Indication: DIABETES MELLITUS
     Dosage: UNK
     Route: 065
  3. CLOTRIMAZOLE RX 10 MG 8N9 [Suspect]
     Active Substance: CLOTRIMAZOLE
     Dosage: 10 MG, UNK
     Route: 002
  4. CLOTRIMAZOLE RX 10 MG 8N9 [Suspect]
     Active Substance: CLOTRIMAZOLE
     Indication: CANDIDA INFECTION
     Dosage: 10 MG, SINGLE
     Route: 048
     Dates: start: 20150127, end: 20150127
  5. CLOTRIMAZOLE RX 10 MG 8N9 [Suspect]
     Active Substance: CLOTRIMAZOLE
     Dosage: 10 MG, BID
     Route: 002
     Dates: start: 201410
  6. CLINDAMYCIN                        /00166003/ [Concomitant]
     Indication: PROPHYLAXIS
     Dosage: 300 MG, PRN
     Route: 065

REACTIONS (4)
  - Underdose [Unknown]
  - Accidental exposure to product [Recovered/Resolved]
  - Incorrect drug administration duration [Unknown]
  - Drug ineffective [Unknown]

NARRATIVE: CASE EVENT DATE: 201410
